FAERS Safety Report 23818950 (Version 1)
Quarter: 2024Q2

REPORT INFORMATION
  Report Type: Spontaneous
  Country: US (occurrence: US)
  Receive Date: 20240506
  Receipt Date: 20240506
  Transmission Date: 20240716
  Serious: No
  Sender: FDA-Public Use
  Company Number: US-AUROBINDO-AUR-APL-2023-051935

PATIENT
  Sex: Male

DRUGS (2)
  1. DEXTROMETHORPHAN\GUAIFENESIN [Suspect]
     Active Substance: DEXTROMETHORPHAN\GUAIFENESIN
     Indication: Increased viscosity of upper respiratory secretion
     Dosage: UNK, 7 IN 1 BLISTER PACK, (IN THE BEGING OF THE YEAR)
     Route: 065
  2. GUAIFENESIN [Suspect]
     Active Substance: GUAIFENESIN
     Indication: Increased viscosity of upper respiratory secretion
     Dosage: UNK
     Route: 065

REACTIONS (1)
  - Faeces discoloured [Unknown]
